FAERS Safety Report 4512903-8 (Version None)
Quarter: 2004Q4

REPORT INFORMATION
  Report Type: 
  Country: None (occurrence: None)
  Receive Date: 20041123
  Receipt Date: 20041123
  Transmission Date: 20050328
  Serious: Yes (Other)
  Sender: FDA-Public Use
  Company Number: None

PATIENT
  Age: 39 Year
  Sex: Female

DRUGS (2)
  1. REMICADE [Suspect]
     Indication: MIXED CONNECTIVE TISSUE DISEASE
     Dosage: 400 MG IV Q 8 WEEKS
     Route: 042
     Dates: start: 20010901, end: 20030301
  2. REMICADE [Suspect]
     Indication: RHEUMATOID ARTHRITIS
     Dosage: 400 MG IV Q 8 WEEKS
     Route: 042
     Dates: start: 20010901, end: 20030301

REACTIONS (5)
  - ABDOMINAL PAIN [None]
  - GRANULOMA [None]
  - PLEURAL EFFUSION [None]
  - SALPINGO-OOPHORECTOMY [None]
  - TUBERCULOSIS [None]
